FAERS Safety Report 21063760 (Version 1)
Quarter: 2022Q3

REPORT INFORMATION
  Report Type: Spontaneous
  Country: US (occurrence: None)
  Receive Date: 20220709
  Receipt Date: 20220709
  Transmission Date: 20221027
  Serious: Yes (Disabling)
  Sender: FDA-Public Use
  Company Number: None

PATIENT
  Age: 76 Year
  Sex: Male
  Weight: 93.6 kg

DRUGS (11)
  1. MOLNUPIRAVIR [Suspect]
     Active Substance: MOLNUPIRAVIR
     Indication: COVID-19
     Dosage: OTHER QUANTITY : 4 CAPSULE(S);?FREQUENCY : EVERY 12 HOURS;?
     Route: 048
     Dates: start: 20220524
  2. OLMESARTAN [Concomitant]
     Active Substance: OLMESARTAN
  3. FLECAINIDE [Concomitant]
     Active Substance: FLECAINIDE
  4. HYDROCHLOROTHIAZIDE [Concomitant]
     Active Substance: HYDROCHLOROTHIAZIDE
  5. ATORVASTATIN [Concomitant]
     Active Substance: ATORVASTATIN
  6. ESCITALOPRAM [Concomitant]
     Active Substance: ESCITALOPRAM OXALATE
  7. ATIVAN [Concomitant]
     Active Substance: LORAZEPAM
  8. ELIQUIS [Concomitant]
     Active Substance: APIXABAN
  9. DILTIAZEM [Concomitant]
     Active Substance: DILTIAZEM
  10. POTASSIUM [Concomitant]
     Active Substance: POTASSIUM
  11. PEPCID [Concomitant]
     Active Substance: FAMOTIDINE

REACTIONS (3)
  - Depressed mood [None]
  - Anxiety [None]
  - Mental disorder [None]

NARRATIVE: CASE EVENT DATE: 20220528
